FAERS Safety Report 8603254-0 (Version None)
Quarter: 2012Q3

REPORT INFORMATION
  Report Type: 
  Country: None (occurrence: None)
  Receive Date: 20120817
  Receipt Date: 20120809
  Transmission Date: 20120928
  Serious: Yes (Hospitalization)
  Sender: FDA-Public Use
  Company Number: US-ACTELION-A-NJ2012-69438

PATIENT
  Age: 74 Year
  Sex: Male

DRUGS (3)
  1. ADCIRCA [Concomitant]
  2. COUMADIN [Concomitant]
  3. VENTAVIS [Suspect]
     Indication: PULMONARY ARTERIAL HYPERTENSION
     Dosage: UNK
     Route: 055

REACTIONS (3)
  - PNEUMONIA [None]
  - IMPLANTABLE DEFIBRILLATOR INSERTION [None]
  - VENTRICULAR TACHYCARDIA [None]
